FAERS Safety Report 16225268 (Version 2)
Quarter: 2019Q2

REPORT INFORMATION
  Report Type: Spontaneous
  Country: US (occurrence: US)
  Receive Date: 20190422
  Receipt Date: 20190509
  Transmission Date: 20190711
  Serious: Yes (Other)
  Sender: FDA-Public Use
  Company Number: US-ASTRAZENECA-2019SE11060

PATIENT

DRUGS (12)
  1. PRILOSEC [Suspect]
     Active Substance: OMEPRAZOLE MAGNESIUM
     Route: 048
  2. LIPITOR [Concomitant]
     Active Substance: ATORVASTATIN CALCIUM
  3. COREG [Concomitant]
     Active Substance: CARVEDILOL
  4. ALTACE [Concomitant]
     Active Substance: RAMIPRIL
  5. PRILOSEC [Suspect]
     Active Substance: OMEPRAZOLE MAGNESIUM
     Dosage: GENERIC20.0MG ONCE/SINGLE ADMINISTRATION
     Route: 048
     Dates: start: 20080305
  6. NEXIUM [Suspect]
     Active Substance: ESOMEPRAZOLE MAGNESIUM
     Route: 048
  7. NEXIUM [Suspect]
     Active Substance: ESOMEPRAZOLE MAGNESIUM
     Route: 048
  8. PREVACID [Suspect]
     Active Substance: LANSOPRAZOLE
     Route: 065
  9. COUMADIN [Concomitant]
     Active Substance: WARFARIN SODIUM
  10. PRILOSEC [Suspect]
     Active Substance: OMEPRAZOLE MAGNESIUM
     Dosage: 20.0MG ONCE/SINGLE ADMINISTRATION
     Route: 048
     Dates: start: 20070809
  11. PREVACID [Suspect]
     Active Substance: LANSOPRAZOLE
     Route: 048
     Dates: start: 19990809
  12. PROTONIX [Suspect]
     Active Substance: PANTOPRAZOLE SODIUM
     Route: 065

REACTIONS (4)
  - Chronic kidney disease [Unknown]
  - Rebound acid hypersecretion [Unknown]
  - Renal failure [Unknown]
  - Renal injury [Unknown]
